FAERS Safety Report 14846498 (Version 6)
Quarter: 2021Q3

REPORT INFORMATION
  Report Type: Spontaneous
  Country: US (occurrence: US)
  Receive Date: 20180504
  Receipt Date: 20210715
  Transmission Date: 20211014
  Serious: Yes (Death, Hospitalization, Other)
  Sender: FDA-Public Use
  Company Number: US-GLAXOSMITHKLINE-US2018GSK078826

PATIENT
  Age: 73 Year
  Sex: Female

DRUGS (2)
  1. PROTONIX [Suspect]
     Active Substance: PANTOPRAZOLE SODIUM
     Indication: GASTROOESOPHAGEAL REFLUX DISEASE
     Dosage: 40 MG, QD
     Route: 048
     Dates: start: 20070109, end: 20070410
  2. PREVACID 24 HR [Suspect]
     Active Substance: LANSOPRAZOLE
     Indication: GASTROOESOPHAGEAL REFLUX DISEASE
     Dosage: UNK
     Route: 048

REACTIONS (22)
  - Kaposi^s sarcoma [Unknown]
  - Nephropathy [Unknown]
  - Haematuria [Unknown]
  - Renal failure [Unknown]
  - Renal transplant [Unknown]
  - Urinary incontinence [Unknown]
  - Renal tubular necrosis [Unknown]
  - Urinary tract obstruction [Unknown]
  - Anaemia [Unknown]
  - Nephrolithiasis [Unknown]
  - Acute kidney injury [Unknown]
  - Proteinuria [Unknown]
  - Peripheral vascular disorder [Unknown]
  - End stage renal disease [Fatal]
  - Perinephric collection [Unknown]
  - Type 2 diabetes mellitus [Fatal]
  - Dysuria [Unknown]
  - Hypertension [Unknown]
  - Chronic kidney disease [Unknown]
  - Dialysis [Unknown]
  - Diabetic nephropathy [Unknown]
  - Nephritis [Unknown]

NARRATIVE: CASE EVENT DATE: 2013
